FAERS Safety Report 9216734 (Version 1)
Quarter: 2013Q2

REPORT INFORMATION
  Report Type: Spontaneous
  Country: US (occurrence: US)
  Receive Date: 20130408
  Receipt Date: 20130408
  Transmission Date: 20140414
  Serious: No
  Sender: FDA-Public Use
  Company Number: US-PFIZER INC-2013109667

PATIENT
  Age: 48 Year
  Sex: Male
  Weight: 97.5 kg

DRUGS (2)
  1. EFFEXOR XR [Suspect]
     Indication: POST-TRAUMATIC STRESS DISORDER
     Dosage: 75 MG DAILY
     Dates: start: 2001
  2. VENLAFAXINE HYDROCHLORIDE [Suspect]
     Indication: POST-TRAUMATIC STRESS DISORDER
     Dosage: 75 MG DAILY

REACTIONS (2)
  - Dizziness [Unknown]
  - Vertigo [Unknown]
